FAERS Safety Report 18975345 (Version 2)
Quarter: 2021Q1

REPORT INFORMATION
  Report Type: Spontaneous
  Country: GB (occurrence: GB)
  Receive Date: 20210305
  Receipt Date: 20210325
  Transmission Date: 20210420
  Serious: Yes (Other)
  Sender: FDA-Public Use
  Company Number: GB-TEVA-2021-GB-1883928

PATIENT
  Age: 22 Year
  Sex: Female
  Weight: 101 kg

DRUGS (3)
  1. VENLAFAXINE [Suspect]
     Active Substance: VENLAFAXINE HYDROCHLORIDE
     Indication: DEPRESSION
     Dosage: 37.5MG
     Route: 048
  2. MIRTAZAPIN [Concomitant]
     Active Substance: MIRTAZAPINE
     Indication: ILL-DEFINED DISORDER
  3. DIAZEPAN [Concomitant]
     Active Substance: DIAZEPAM
     Indication: ILL-DEFINED DISORDER

REACTIONS (8)
  - Insomnia [Unknown]
  - Feeling abnormal [Unknown]
  - Homicidal ideation [Recovered/Resolved with Sequelae]
  - Anxiety [Unknown]
  - Palpitations [Unknown]
  - Decreased appetite [Unknown]
  - Irritability [Unknown]
  - Suicide attempt [Unknown]
